FAERS Safety Report 6387588-9 (Version None)
Quarter: 2009Q3

REPORT INFORMATION
  Report Type: 
  Country: None (occurrence: None)
  Receive Date: 20090930
  Receipt Date: 20090916
  Transmission Date: 20100115
  Serious: Yes (Hospitalization)
  Sender: FDA-Public Use
  Company Number: A-NJ2008-22167

PATIENT
  Age: 69 Year
  Sex: Female

DRUGS (3)
  1. TRACLEER [Suspect]
     Indication: PULMONARY ARTERIAL HYPERTENSION
     Dosage: 125 MG, OD, ORAL; 62.5 MG,  ORAL; 125 MG, ORAL
     Route: 048
     Dates: start: 20080328, end: 20080401
  2. TRACLEER [Suspect]
     Indication: PULMONARY ARTERIAL HYPERTENSION
     Dosage: 125 MG, OD, ORAL; 62.5 MG,  ORAL; 125 MG, ORAL
     Route: 048
     Dates: start: 20080401, end: 20090501
  3. REVATIO [Concomitant]

REACTIONS (3)
  - ANAEMIA [None]
  - CONDITION AGGRAVATED [None]
  - HEADACHE [None]
